FAERS Safety Report 7578169-X (Version None)
Quarter: 2011Q2

REPORT INFORMATION
  Report Type: 
  Country: None (occurrence: None)
  Receive Date: 20110628
  Receipt Date: 20110623
  Transmission Date: 20111010
  Serious: Yes (Other)
  Sender: FDA-Public Use
  Company Number: A0932743A

PATIENT
  Sex: Male

DRUGS (2)
  1. UNKNOWN [Concomitant]
  2. LOVAZA [Suspect]
     Dosage: 4CAP PER DAY
     Route: 048

REACTIONS (1)
  - PANCREATITIS [None]
